FAERS Safety Report 25830117 (Version 1)
Quarter: 2025Q3

REPORT INFORMATION
  Report Type: Spontaneous
  Country: CA (occurrence: CA)
  Receive Date: 20250922
  Receipt Date: 20250922
  Transmission Date: 20251021
  Serious: Yes (Death, Life-Threatening, Hospitalization, Disabling, Congenital Anomaly, Other)
  Sender: SANDOZ
  Company Number: CA-002147023-NVSC2023CA013469

PATIENT
  Age: 43 Year
  Sex: Female
  Weight: 68 kg

DRUGS (245)
  1. ADALIMUMAB [Suspect]
     Active Substance: ADALIMUMAB
     Route: 048
  2. ADALIMUMAB [Suspect]
     Active Substance: ADALIMUMAB
     Route: 058
  3. ADALIMUMAB [Suspect]
     Active Substance: ADALIMUMAB
     Indication: Psoriatic arthropathy
     Route: 058
  4. ALENDRONIC ACID [Suspect]
     Active Substance: ALENDRONIC ACID
     Indication: Rheumatoid arthritis
     Route: 065
  5. ACETAMINOPHEN [Suspect]
     Active Substance: ACETAMINOPHEN
     Route: 065
  6. ACETAMINOPHEN [Suspect]
     Active Substance: ACETAMINOPHEN
     Indication: Product used for unknown indication
     Route: 065
  7. ACETAMINOPHEN [Suspect]
     Active Substance: ACETAMINOPHEN
     Route: 065
  8. ACTEMRA [Suspect]
     Active Substance: TOCILIZUMAB
     Route: 048
  9. ACTEMRA [Suspect]
     Active Substance: TOCILIZUMAB
     Route: 042
  10. ACTEMRA [Suspect]
     Active Substance: TOCILIZUMAB
     Route: 042
  11. ACTEMRA [Suspect]
     Active Substance: TOCILIZUMAB
     Route: 042
  12. ACTEMRA [Suspect]
     Active Substance: TOCILIZUMAB
     Indication: Rheumatoid arthritis
     Route: 042
  13. ACTEMRA [Suspect]
     Active Substance: TOCILIZUMAB
     Route: 042
  14. ACTEMRA [Suspect]
     Active Substance: TOCILIZUMAB
     Route: 058
  15. ACTEMRA [Suspect]
     Active Substance: TOCILIZUMAB
     Route: 058
  16. ACTEMRA [Suspect]
     Active Substance: TOCILIZUMAB
     Route: 058
  17. ACTEMRA [Suspect]
     Active Substance: TOCILIZUMAB
     Route: 065
  18. ALENDRONATE SODIUM [Suspect]
     Active Substance: ALENDRONATE SODIUM
     Indication: Rheumatoid arthritis
     Route: 048
  19. ALENDRONATE SODIUM [Suspect]
     Active Substance: ALENDRONATE SODIUM
     Route: 065
  20. PREDNISONE [Suspect]
     Active Substance: PREDNISONE
     Route: 065
  21. PREDNISONE [Suspect]
     Active Substance: PREDNISONE
     Indication: Rheumatoid arthritis
     Route: 048
  22. PREDNISONE [Suspect]
     Active Substance: PREDNISONE
     Route: 065
  23. LEFLUNOMIDE [Suspect]
     Active Substance: LEFLUNOMIDE
     Indication: Rheumatoid arthritis
     Route: 048
  24. ARAVA [Suspect]
     Active Substance: LEFLUNOMIDE
     Dosage: 20 MG, QD
     Route: 048
  25. ARAVA [Suspect]
     Active Substance: LEFLUNOMIDE
     Route: 048
  26. ARAVA [Suspect]
     Active Substance: LEFLUNOMIDE
     Indication: Rheumatoid arthritis
     Route: 065
  27. CELECOXIB [Suspect]
     Active Substance: CELECOXIB
     Dosage: 2 DOSAGE FORM, QD
     Route: 048
  28. CELECOXIB [Suspect]
     Active Substance: CELECOXIB
     Dosage: 2 DOSAGE FORM, QD
     Route: 048
  29. CELECOXIB [Suspect]
     Active Substance: CELECOXIB
     Indication: Product used for unknown indication
     Dosage: 20 MG, QD
     Route: 048
  30. CELECOXIB [Suspect]
     Active Substance: CELECOXIB
     Indication: Product used for unknown indication
     Dosage: 20 MG, QD
     Route: 048
  31. CELECOXIB [Suspect]
     Active Substance: CELECOXIB
     Dosage: 20 MG, QD
     Route: 048
  32. CETIRIZINE [Suspect]
     Active Substance: CETIRIZINE HYDROCHLORIDE
     Route: 048
  33. CETIRIZINE [Suspect]
     Active Substance: CETIRIZINE HYDROCHLORIDE
     Indication: Rheumatoid arthritis
     Route: 065
  34. CETIRIZINE [Suspect]
     Active Substance: CETIRIZINE HYDROCHLORIDE
     Route: 065
  35. CETIRIZINE HYDROCHLORIDE [Suspect]
     Active Substance: CETIRIZINE HYDROCHLORIDE
     Indication: Rheumatoid arthritis
     Dosage: 10 MG, QD
     Route: 048
  36. CETIRIZINE HYDROCHLORIDE [Suspect]
     Active Substance: CETIRIZINE HYDROCHLORIDE
     Indication: Off label use
     Route: 065
  37. CHLORAPREP [Suspect]
     Active Substance: CHLORHEXIDINE GLUCONATE\ISOPROPYL ALCOHOL
     Route: 048
  38. CHLORAPREP [Suspect]
     Active Substance: CHLORHEXIDINE GLUCONATE\ISOPROPYL ALCOHOL
     Route: 061
  39. CHLORAPREP [Suspect]
     Active Substance: CHLORHEXIDINE GLUCONATE\ISOPROPYL ALCOHOL
     Indication: Product used for unknown indication
     Route: 065
  40. CIMZIA [Suspect]
     Active Substance: CERTOLIZUMAB PEGOL
     Route: 058
  41. CIMZIA [Suspect]
     Active Substance: CERTOLIZUMAB PEGOL
     Indication: Rheumatoid arthritis
     Route: 058
  42. CIMZIA [Suspect]
     Active Substance: CERTOLIZUMAB PEGOL
     Route: 065
  43. CORTISONE [Suspect]
     Active Substance: CORTISONE
     Route: 003
  44. CORTISONE [Suspect]
     Active Substance: CORTISONE
     Route: 048
  45. CORTISONE [Suspect]
     Active Substance: CORTISONE
     Route: 048
  46. CORTISONE [Suspect]
     Active Substance: CORTISONE
     Route: 058
  47. CORTISONE [Suspect]
     Active Substance: CORTISONE
     Route: 058
  48. CORTISONE [Suspect]
     Active Substance: CORTISONE
     Route: 061
  49. CORTISONE [Suspect]
     Active Substance: CORTISONE
     Indication: Rheumatoid arthritis
     Route: 065
  50. CORTISONE [Suspect]
     Active Substance: CORTISONE
     Route: 065
  51. CORTISONE [Suspect]
     Active Substance: CORTISONE
     Route: 065
  52. CORTISONE ACETATE [Suspect]
     Active Substance: CORTISONE ACETATE
     Indication: Rheumatoid arthritis
     Route: 048
  53. CORTISONE ACETATE [Suspect]
     Active Substance: CORTISONE ACETATE
     Route: 061
  54. COSENTYX [Suspect]
     Active Substance: SECUKINUMAB
     Indication: Psoriatic arthropathy
     Route: 042
  55. COSENTYX [Suspect]
     Active Substance: SECUKINUMAB
     Route: 042
  56. DICLOFENAC [Suspect]
     Active Substance: DICLOFENAC
     Indication: Product used for unknown indication
     Route: 047
  57. DICLOFENAC POTASSIUM [Suspect]
     Active Substance: DICLOFENAC POTASSIUM
     Route: 065
  58. DICLOFENAC POTASSIUM [Suspect]
     Active Substance: DICLOFENAC POTASSIUM
     Indication: Product used for unknown indication
     Route: 065
  59. DICLOFENAC SODIUM [Suspect]
     Active Substance: DICLOFENAC SODIUM
     Route: 065
  60. DICLOFENAC SODIUM [Suspect]
     Active Substance: DICLOFENAC SODIUM
     Indication: Product used for unknown indication
     Route: 065
  61. DESOXIMETASONE [Suspect]
     Active Substance: DESOXIMETASONE
     Indication: Rheumatoid arthritis
     Dosage: 25 MG, QW
     Route: 048
  62. DESOXIMETASONE [Suspect]
     Active Substance: DESOXIMETASONE
     Route: 003
  63. DESOXIMETASONE [Suspect]
     Active Substance: DESOXIMETASONE
     Route: 048
  64. DESOXIMETASONE [Suspect]
     Active Substance: DESOXIMETASONE
     Route: 058
  65. DESOXIMETASONE [Suspect]
     Active Substance: DESOXIMETASONE
     Route: 065
  66. ERELZI [Suspect]
     Active Substance: ETANERCEPT-SZZS
     Dosage: 50 MG, QW
     Route: 058
  67. ERELZI [Suspect]
     Active Substance: ETANERCEPT-SZZS
     Indication: Rheumatoid arthritis
     Dosage: 50 MG, QD
     Route: 058
  68. ENBREL [Suspect]
     Active Substance: ETANERCEPT
     Dosage: 20 MG, QW
     Route: 058
  69. ENBREL [Suspect]
     Active Substance: ETANERCEPT
     Indication: Psoriatic arthropathy
     Dosage: 50 MG, QW
     Route: 058
  70. ENBREL [Suspect]
     Active Substance: ETANERCEPT
     Indication: Rheumatoid arthritis
     Route: 058
  71. FOLIC ACID [Suspect]
     Active Substance: FOLIC ACID
     Route: 058
  72. FOLIC ACID [Suspect]
     Active Substance: FOLIC ACID
     Route: 065
  73. FOLIC ACID [Suspect]
     Active Substance: FOLIC ACID
     Route: 058
  74. FOLIC ACID [Suspect]
     Active Substance: FOLIC ACID
     Indication: Rheumatoid arthritis
     Route: 065
  75. FOLIC ACID [Suspect]
     Active Substance: FOLIC ACID
     Route: 065
  76. FOLIC ACID [Suspect]
     Active Substance: FOLIC ACID
     Route: 065
  77. FOLIC ACID [Suspect]
     Active Substance: FOLIC ACID
     Route: 058
  78. FOLIC ACID [Suspect]
     Active Substance: FOLIC ACID
     Route: 058
  79. FOLIC ACID [Suspect]
     Active Substance: FOLIC ACID
     Route: 065
  80. FLUMETHASONE PIVALATE [Suspect]
     Active Substance: FLUMETHASONE PIVALATE
     Route: 058
  81. FLUMETHASONE PIVALATE [Suspect]
     Active Substance: FLUMETHASONE PIVALATE
     Indication: Rheumatoid arthritis
     Route: 065
  82. FOSAMAX [Suspect]
     Active Substance: ALENDRONATE SODIUM
     Indication: Product used for unknown indication
     Route: 048
  83. HYRIMOZ [Suspect]
     Active Substance: ADALIMUMAB-ADAZ
     Route: 048
  84. HYRIMOZ [Suspect]
     Active Substance: ADALIMUMAB-ADAZ
     Indication: Psoriatic arthropathy
     Route: 058
  85. HYRIMOZ [Suspect]
     Active Substance: ADALIMUMAB-ADAZ
     Route: 058
  86. HYRIMOZ [Suspect]
     Active Substance: ADALIMUMAB-ADAZ
     Route: 058
  87. HUMIRA [Suspect]
     Active Substance: ADALIMUMAB
     Indication: Rheumatoid arthritis
     Route: 058
  88. HUMIRA [Suspect]
     Active Substance: ADALIMUMAB
     Indication: Psoriatic arthropathy
     Route: 065
  89. HYDROCORTISONE PROBUTATE [Suspect]
     Active Substance: HYDROCORTISONE PROBUTATE
     Indication: Product used for unknown indication
     Route: 065
  90. HYDROXYCHLOROQUINE [Suspect]
     Active Substance: HYDROXYCHLOROQUINE
     Dosage: 400 MG, QD
     Route: 048
  91. HYDROXYCHLOROQUINE [Suspect]
     Active Substance: HYDROXYCHLOROQUINE
     Dosage: 420 MG, QD
     Route: 065
  92. HYDROXYCHLOROQUINE [Suspect]
     Active Substance: HYDROXYCHLOROQUINE
     Dosage: DOSE 40, QD
     Route: 066
  93. HYDROXYCHLOROQUINE [Suspect]
     Active Substance: HYDROXYCHLOROQUINE
     Indication: Rheumatoid arthritis
     Route: 065
  94. HYDROXYCHLOROQUINE SULFATE [Suspect]
     Active Substance: HYDROXYCHLOROQUINE SULFATE
     Indication: Rheumatoid arthritis
     Route: 065
  95. INFLIXIMAB [Suspect]
     Active Substance: INFLIXIMAB
     Route: 065
  96. INFLIXIMAB [Suspect]
     Active Substance: INFLIXIMAB
     Indication: Rheumatoid arthritis
     Route: 042
  97. LEFLUNOMIDE [Suspect]
     Active Substance: LEFLUNOMIDE
     Indication: Product used for unknown indication
     Route: 048
  98. LEFLUNOMIDE [Suspect]
     Active Substance: LEFLUNOMIDE
     Route: 065
  99. FLUMETHASONE PIVALATE [Suspect]
     Active Substance: FLUMETHASONE PIVALATE
     Route: 058
  100. FLUMETHASONE PIVALATE [Suspect]
     Active Substance: FLUMETHASONE PIVALATE
     Indication: Rheumatoid arthritis
     Route: 065
  101. METHOTREXATE [Suspect]
     Active Substance: METHOTREXATE
     Route: 048
  102. METHOTREXATE [Suspect]
     Active Substance: METHOTREXATE
     Dosage: 20 MG, QD
     Route: 048
  103. METHOTREXATE [Suspect]
     Active Substance: METHOTREXATE
     Indication: Rheumatoid arthritis
     Dosage: 25 MG, QW
     Route: 013
  104. METHOTREXATE [Suspect]
     Active Substance: METHOTREXATE
     Dosage: 25 MG, QW
     Route: 048
  105. METHOTREXATE [Suspect]
     Active Substance: METHOTREXATE
     Route: 048
  106. METHOTREXATE [Suspect]
     Active Substance: METHOTREXATE
     Route: 048
  107. METHOTREXATE [Suspect]
     Active Substance: METHOTREXATE
     Route: 058
  108. METHOTREXATE [Suspect]
     Active Substance: METHOTREXATE
     Dosage: DOSE 15, QD
     Route: 065
  109. METHOTREXATE [Suspect]
     Active Substance: METHOTREXATE
     Route: 048
  110. METHOTREXATE [Suspect]
     Active Substance: METHOTREXATE
     Route: 058
  111. METHOTREXATE [Suspect]
     Active Substance: METHOTREXATE
     Route: 065
  112. METHOTREXATE [Suspect]
     Active Substance: METHOTREXATE
     Route: 058
  113. METHOTREXATE [Suspect]
     Active Substance: METHOTREXATE
     Route: 065
  114. METHOTREXATE SODIUM [Suspect]
     Active Substance: METHOTREXATE SODIUM
     Route: 048
  115. METHOTREXATE SODIUM [Suspect]
     Active Substance: METHOTREXATE SODIUM
     Route: 048
  116. METHOTREXATE SODIUM [Suspect]
     Active Substance: METHOTREXATE SODIUM
     Indication: Rheumatoid arthritis
     Route: 058
  117. MYCOPHENOLATE MOFETIL [Suspect]
     Active Substance: MYCOPHENOLATE MOFETIL
     Indication: Product used for unknown indication
     Route: 065
  118. NAPROXEN SODIUM [Suspect]
     Active Substance: NAPROXEN SODIUM
     Dosage: 1000 MG, QD
     Route: 065
  119. NAPROXEN SODIUM [Suspect]
     Active Substance: NAPROXEN SODIUM
     Indication: Rheumatoid arthritis
     Dosage: 500 MG, BID
     Route: 065
  120. NEOMYCIN [Suspect]
     Active Substance: NEOMYCIN
     Indication: Product used for unknown indication
     Route: 065
  121. OXYCODONE [Suspect]
     Active Substance: OXYCODONE
     Indication: Product used for unknown indication
     Route: 065
  122. ORENCIA [Suspect]
     Active Substance: ABATACEPT
     Indication: Rheumatoid arthritis
     Route: 065
  123. ORENCIA [Suspect]
     Active Substance: ABATACEPT
     Route: 041
  124. ORENCIA [Suspect]
     Active Substance: ABATACEPT
     Route: 042
  125. ORENCIA [Suspect]
     Active Substance: ABATACEPT
     Route: 042
  126. ORENCIA [Suspect]
     Active Substance: ABATACEPT
     Route: 058
  127. ORENCIA [Suspect]
     Active Substance: ABATACEPT
     Route: 058
  128. OTEZLA [Suspect]
     Active Substance: APREMILAST
     Route: 048
  129. OTEZLA [Suspect]
     Active Substance: APREMILAST
     Indication: Product used for unknown indication
     Route: 065
  130. OTEZLA [Suspect]
     Active Substance: APREMILAST
     Dosage: 3 MG, BID
     Route: 048
  131. OXYCODONE TEREPHTHALATE [Suspect]
     Active Substance: OXYCODONE TEREPHTHALATE
     Indication: Product used for unknown indication
     Route: 065
  132. PREGABALIN [Suspect]
     Active Substance: PREGABALIN
     Indication: Product used for unknown indication
     Route: 065
  133. PREGABALIN [Suspect]
     Active Substance: PREGABALIN
     Indication: Product used for unknown indication
     Route: 065
  134. PHTHALYLSULFATHIAZOLE [Suspect]
     Active Substance: PHTHALYLSULFATHIAZOLE
     Dosage: 1000 MG, BID
     Route: 065
  135. PHTHALYLSULFATHIAZOLE [Suspect]
     Active Substance: PHTHALYLSULFATHIAZOLE
     Dosage: 2000 MG, QD
     Route: 065
  136. PHTHALYLSULFATHIAZOLE [Suspect]
     Active Substance: PHTHALYLSULFATHIAZOLE
     Dosage: 400 MG, QD
     Route: 065
  137. PHTHALYLSULFATHIAZOLE [Suspect]
     Active Substance: PHTHALYLSULFATHIAZOLE
     Route: 048
  138. PHTHALYLSULFATHIAZOLE [Suspect]
     Active Substance: PHTHALYLSULFATHIAZOLE
     Route: 065
  139. PHTHALYLSULFATHIAZOLE [Suspect]
     Active Substance: PHTHALYLSULFATHIAZOLE
     Route: 016
  140. PHTHALYLSULFATHIAZOLE [Suspect]
     Active Substance: PHTHALYLSULFATHIAZOLE
     Route: 042
  141. PHTHALYLSULFATHIAZOLE [Suspect]
     Active Substance: PHTHALYLSULFATHIAZOLE
     Indication: Rheumatoid arthritis
     Route: 065
  142. PLAQUENIL [Suspect]
     Active Substance: HYDROXYCHLOROQUINE SULFATE
     Route: 048
  143. PLAQUENIL [Suspect]
     Active Substance: HYDROXYCHLOROQUINE SULFATE
     Indication: Rheumatoid arthritis
     Route: 065
  144. PREDNISONE [Suspect]
     Active Substance: PREDNISONE
     Route: 048
  145. PREDNISONE [Suspect]
     Active Substance: PREDNISONE
     Indication: Condition aggravated
     Route: 048
  146. PREDNISONE [Suspect]
     Active Substance: PREDNISONE
     Indication: Psoriatic arthropathy
     Route: 042
  147. PREDNISONE [Suspect]
     Active Substance: PREDNISONE
     Indication: Rheumatoid arthritis
     Route: 065
  148. PSEUDOEPHEDRINE HYDROCHLORIDE [Suspect]
     Active Substance: PSEUDOEPHEDRINE HYDROCHLORIDE
     Indication: Rheumatoid arthritis
     Route: 065
  149. PSEUDOEPHEDRINE HYDROCHLORIDE [Suspect]
     Active Substance: PSEUDOEPHEDRINE HYDROCHLORIDE
     Route: 065
  150. RITUXIMAB [Suspect]
     Active Substance: RITUXIMAB
     Route: 042
  151. RITUXIMAB [Suspect]
     Active Substance: RITUXIMAB
     Indication: Rheumatoid arthritis
     Route: 058
  152. CETIRIZINE HYDROCHLORIDE\PSEUDOEPHEDRINE HYDROCHLORIDE [Suspect]
     Active Substance: CETIRIZINE HYDROCHLORIDE\PSEUDOEPHEDRINE HYDROCHLORIDE
     Route: 048
  153. CETIRIZINE HYDROCHLORIDE\PSEUDOEPHEDRINE HYDROCHLORIDE [Suspect]
     Active Substance: CETIRIZINE HYDROCHLORIDE\PSEUDOEPHEDRINE HYDROCHLORIDE
     Route: 065
  154. CETIRIZINE HYDROCHLORIDE\PSEUDOEPHEDRINE HYDROCHLORIDE [Suspect]
     Active Substance: CETIRIZINE HYDROCHLORIDE\PSEUDOEPHEDRINE HYDROCHLORIDE
     Route: 065
  155. CETIRIZINE HYDROCHLORIDE\PSEUDOEPHEDRINE HYDROCHLORIDE [Suspect]
     Active Substance: CETIRIZINE HYDROCHLORIDE\PSEUDOEPHEDRINE HYDROCHLORIDE
     Route: 048
  156. CETIRIZINE HYDROCHLORIDE\PSEUDOEPHEDRINE HYDROCHLORIDE [Suspect]
     Active Substance: CETIRIZINE HYDROCHLORIDE\PSEUDOEPHEDRINE HYDROCHLORIDE
     Indication: Rheumatoid arthritis
     Route: 065
  157. CETIRIZINE HYDROCHLORIDE\PSEUDOEPHEDRINE HYDROCHLORIDE [Suspect]
     Active Substance: CETIRIZINE HYDROCHLORIDE\PSEUDOEPHEDRINE HYDROCHLORIDE
     Route: 065
  158. CETIRIZINE HYDROCHLORIDE\PSEUDOEPHEDRINE HYDROCHLORIDE [Suspect]
     Active Substance: CETIRIZINE HYDROCHLORIDE\PSEUDOEPHEDRINE HYDROCHLORIDE
     Route: 065
  159. CETIRIZINE HYDROCHLORIDE\PSEUDOEPHEDRINE HYDROCHLORIDE [Suspect]
     Active Substance: CETIRIZINE HYDROCHLORIDE\PSEUDOEPHEDRINE HYDROCHLORIDE
     Indication: Product used for unknown indication
     Route: 065
  160. CETIRIZINE HYDROCHLORIDE\PSEUDOEPHEDRINE HYDROCHLORIDE [Suspect]
     Active Substance: CETIRIZINE HYDROCHLORIDE\PSEUDOEPHEDRINE HYDROCHLORIDE
     Indication: Rheumatoid arthritis
     Route: 065
  161. CETIRIZINE HYDROCHLORIDE\PSEUDOEPHEDRINE HYDROCHLORIDE [Suspect]
     Active Substance: CETIRIZINE HYDROCHLORIDE\PSEUDOEPHEDRINE HYDROCHLORIDE
     Route: 065
  162. REMICADE [Suspect]
     Active Substance: INFLIXIMAB
     Indication: Rheumatoid arthritis
     Route: 042
  163. REMICADE [Suspect]
     Active Substance: INFLIXIMAB
     Route: 058
  164. LEFLUNOMIDE [Suspect]
     Active Substance: LEFLUNOMIDE
     Indication: Product used for unknown indication
     Route: 048
  165. LEFLUNOMIDE [Suspect]
     Active Substance: LEFLUNOMIDE
     Route: 048
  166. LEFLUNOMIDE [Suspect]
     Active Substance: LEFLUNOMIDE
     Route: 048
  167. LEFLUNOMIDE [Suspect]
     Active Substance: LEFLUNOMIDE
     Route: 048
  168. SIMPONI [Suspect]
     Active Substance: GOLIMUMAB
     Dosage: 50 MG, QMO
     Route: 065
  169. SIMPONI [Suspect]
     Active Substance: GOLIMUMAB
     Dosage: 50 MG, Q24H
     Route: 058
  170. SIMPONI [Suspect]
     Active Substance: GOLIMUMAB
     Route: 042
  171. SIMPONI [Suspect]
     Active Substance: GOLIMUMAB
     Indication: Rheumatoid arthritis
     Route: 058
  172. SIMPONI [Suspect]
     Active Substance: GOLIMUMAB
     Route: 065
  173. STELARA [Suspect]
     Active Substance: USTEKINUMAB
     Route: 042
  174. STELARA [Suspect]
     Active Substance: USTEKINUMAB
     Route: 042
  175. STELARA [Suspect]
     Active Substance: USTEKINUMAB
     Indication: Psoriatic arthropathy
     Route: 058
  176. STELARA [Suspect]
     Active Substance: USTEKINUMAB
     Route: 058
  177. STELARA [Suspect]
     Active Substance: USTEKINUMAB
     Route: 065
  178. SULFAMETHOXAZOLE [Suspect]
     Active Substance: SULFAMETHOXAZOLE
     Indication: Product used for unknown indication
     Route: 065
  179. SULFAMETHOXAZOLE AND TRIMETHOPRIM [Suspect]
     Active Substance: SULFAMETHOXAZOLE\TRIMETHOPRIM
     Indication: Product used for unknown indication
     Route: 065
  180. SULFASALAZINE [Suspect]
     Active Substance: SULFASALAZINE
     Dosage: 1 G, QD
     Route: 065
  181. SULFASALAZINE [Suspect]
     Active Substance: SULFASALAZINE
     Dosage: 1 G, BID
     Route: 065
  182. SULFASALAZINE [Suspect]
     Active Substance: SULFASALAZINE
     Dosage: 2 G, QD
     Route: 065
  183. SULFASALAZINE [Suspect]
     Active Substance: SULFASALAZINE
     Dosage: 1 G, BID
     Route: 065
  184. SULFASALAZINE [Suspect]
     Active Substance: SULFASALAZINE
     Dosage: 2000 MG, QD
     Route: 048
  185. SULFASALAZINE [Suspect]
     Active Substance: SULFASALAZINE
     Dosage: 1000 MG, BID
     Route: 048
  186. SULFASALAZINE [Suspect]
     Active Substance: SULFASALAZINE
     Dosage: 1000 MG, BID
     Route: 065
  187. SULFASALAZINE [Suspect]
     Active Substance: SULFASALAZINE
     Route: 048
  188. SULFASALAZINE [Suspect]
     Active Substance: SULFASALAZINE
     Indication: Rheumatoid arthritis
     Route: 048
  189. SULFASALAZINE [Suspect]
     Active Substance: SULFASALAZINE
     Route: 048
  190. SULFASALAZINE [Suspect]
     Active Substance: SULFASALAZINE
     Route: 065
  191. SULFASALAZINE [Suspect]
     Active Substance: SULFASALAZINE
     Route: 065
  192. TOPICORT [Suspect]
     Active Substance: DESOXIMETASONE
     Route: 058
  193. TOPICORT [Suspect]
     Active Substance: DESOXIMETASONE
     Indication: Rheumatoid arthritis
     Route: 065
  194. TRAMADOL HYDROCHLORIDE [Suspect]
     Active Substance: TRAMADOL HYDROCHLORIDE
     Indication: Product used for unknown indication
     Route: 065
  195. PREDNISONE [Suspect]
     Active Substance: PREDNISONE
     Indication: Rheumatoid arthritis
     Route: 048
  196. PREDNISONE [Suspect]
     Active Substance: PREDNISONE
     Route: 048
  197. XELJANZ [Suspect]
     Active Substance: TOFACITINIB CITRATE
     Dosage: 10 MG, QD
     Route: 065
  198. XELJANZ [Suspect]
     Active Substance: TOFACITINIB CITRATE
     Route: 065
  199. XELJANZ [Suspect]
     Active Substance: TOFACITINIB CITRATE
     Dosage: 5 MG, QW
     Route: 048
  200. XELJANZ [Suspect]
     Active Substance: TOFACITINIB CITRATE
     Dosage: 5 MG, QW
     Route: 065
  201. XELJANZ [Suspect]
     Active Substance: TOFACITINIB CITRATE
     Dosage: 5 MG, QD
     Route: 048
  202. XELJANZ [Suspect]
     Active Substance: TOFACITINIB CITRATE
     Dosage: 5 MG, BID
     Route: 065
  203. XELJANZ [Suspect]
     Active Substance: TOFACITINIB CITRATE
     Indication: Psoriatic arthropathy
     Route: 065
  204. XELJANZ [Suspect]
     Active Substance: TOFACITINIB CITRATE
     Route: 065
  205. XELJANZ [Suspect]
     Active Substance: TOFACITINIB CITRATE
     Indication: Rheumatoid arthritis
     Dosage: DOSE 5, BID
     Route: 065
  206. XELJANZ [Suspect]
     Active Substance: TOFACITINIB CITRATE
     Route: 065
  207. ACETAMINOPHEN [Concomitant]
     Active Substance: ACETAMINOPHEN
     Indication: Product used for unknown indication
     Route: 065
  208. ACETAMINOPHEN\CAFFEINE\DIHYDROCODEINE BITARTRATE [Concomitant]
     Active Substance: ACETAMINOPHEN\CAFFEINE\DIHYDROCODEINE BITARTRATE
     Indication: Product used for unknown indication
     Route: 065
  209. ACETAMINOPHEN [Concomitant]
     Active Substance: ACETAMINOPHEN
     Indication: Product used for unknown indication
     Route: 065
  210. ATIVAN [Concomitant]
     Active Substance: LORAZEPAM
     Indication: Product used for unknown indication
     Route: 065
  211. CAFFEINE [Concomitant]
     Active Substance: CAFFEINE
     Indication: Product used for unknown indication
     Route: 065
  212. ACETAMINOPHEN\CAFFEINE\LEVOCETIRIZINE\PHENYLEPHRINE [Concomitant]
     Active Substance: ACETAMINOPHEN\CAFFEINE\LEVOCETIRIZINE\PHENYLEPHRINE
     Indication: Product used for unknown indication
     Route: 065
  213. CALCIUM [Concomitant]
     Active Substance: CALCIUM
     Indication: Product used for unknown indication
     Route: 065
  214. CHOLECALCIFEROL [Concomitant]
     Active Substance: CHOLECALCIFEROL
     Indication: Product used for unknown indication
     Route: 065
  215. CODEINE [Concomitant]
     Active Substance: CODEINE
     Indication: Product used for unknown indication
     Route: 065
  216. DESOGESTREL AND ETHINYL ESTRADIOL [Concomitant]
     Active Substance: DESOGESTREL\ETHINYL ESTRADIOL
     Indication: Product used for unknown indication
     Route: 065
  217. DESOXIMETASONE [Concomitant]
     Active Substance: DESOXIMETASONE
     Indication: Product used for unknown indication
     Route: 065
  218. DEXAMETHASONE [Concomitant]
     Active Substance: DEXAMETHASONE
     Indication: Product used for unknown indication
     Route: 065
  219. PIROXICAM [Concomitant]
     Active Substance: PIROXICAM
     Indication: Product used for unknown indication
     Route: 065
  220. DOXYCYCLINE [Concomitant]
     Active Substance: DOXYCYCLINE
     Indication: Product used for unknown indication
     Route: 065
  221. ERGOCALCIFEROL [Concomitant]
     Active Substance: ERGOCALCIFEROL
     Indication: Product used for unknown indication
     Route: 065
  222. Ergocalciferol;Potassium fluoride;Retinol acetate;Sodium ascorbate [Concomitant]
     Indication: Product used for unknown indication
     Route: 065
  223. ETHINYL ESTRADIOL [Concomitant]
     Active Substance: ETHINYL ESTRADIOL
     Indication: Product used for unknown indication
     Route: 065
  224. GLUCOSAMINE [Concomitant]
     Active Substance: GLUCOSAMINE
     Indication: Product used for unknown indication
     Route: 065
  225. IBUPROFEN [Concomitant]
     Active Substance: IBUPROFEN
     Indication: Product used for unknown indication
     Route: 065
  226. LANSOPRAZOLE [Concomitant]
     Active Substance: LANSOPRAZOLE
     Indication: Product used for unknown indication
     Route: 065
  227. LANSOPRAZOLE\MOSAPRIDE CITRATE [Concomitant]
     Active Substance: LANSOPRAZOLE\MOSAPRIDE CITRATE
     Indication: Product used for unknown indication
     Route: 065
  228. LEVOTHYROXINE SODIUM [Concomitant]
     Active Substance: LEVOTHYROXINE SODIUM
     Indication: Product used for unknown indication
     Route: 065
  229. LISINOPRIL [Concomitant]
     Active Substance: LISINOPRIL
     Indication: Product used for unknown indication
     Route: 065
  230. LISINOPRIL [Concomitant]
     Active Substance: LISINOPRIL
     Indication: Product used for unknown indication
     Route: 065
  231. MAGNESIUM [Concomitant]
     Active Substance: MAGNESIUM
     Indication: Product used for unknown indication
     Route: 065
  232. MELOXICAM [Concomitant]
     Active Substance: MELOXICAM
     Indication: Product used for unknown indication
     Route: 065
  233. PANTOPRAZOLE SODIUM [Concomitant]
     Active Substance: PANTOPRAZOLE SODIUM
     Indication: Product used for unknown indication
     Route: 065
  234. PANTOPRAZOLE [Concomitant]
     Active Substance: PANTOPRAZOLE
     Indication: Product used for unknown indication
     Route: 065
  235. PIROXICAM [Concomitant]
     Active Substance: PIROXICAM
     Indication: Product used for unknown indication
     Route: 065
  236. PREDNISOLONE [Concomitant]
     Active Substance: PREDNISOLONE
     Indication: Product used for unknown indication
     Route: 065
  237. QUETIAPINE [Concomitant]
     Active Substance: QUETIAPINE
     Indication: Product used for unknown indication
     Route: 065
  238. RAMIPRIL [Concomitant]
     Active Substance: RAMIPRIL
     Indication: Product used for unknown indication
     Route: 065
  239. RISEDRONATE SODIUM [Concomitant]
     Active Substance: RISEDRONATE SODIUM
     Indication: Product used for unknown indication
     Route: 065
  240. SULFASALAZINE [Concomitant]
     Active Substance: SULFASALAZINE
     Indication: Product used for unknown indication
     Route: 065
  241. FISH OIL [Concomitant]
     Active Substance: FISH OIL
     Indication: Product used for unknown indication
     Route: 065
  242. TYLENOL [Concomitant]
     Active Substance: ACETAMINOPHEN
     Indication: Product used for unknown indication
     Route: 065
  243. TYLENOL WITH CODEINE [Concomitant]
     Active Substance: ACETAMINOPHEN\CODEINE PHOSPHATE
     Indication: Product used for unknown indication
     Route: 065
  244. VITAMIN D NOS [Concomitant]
     Active Substance: CHOLECALCIFEROL\ERGOCALCIFEROL
     Indication: Product used for unknown indication
     Route: 065
  245. VITAMIN C [Concomitant]
     Active Substance: ASCORBIC ACID
     Indication: Product used for unknown indication
     Route: 065

REACTIONS (50)
  - Musculoskeletal pain [Fatal]
  - Wheezing [Fatal]
  - Rheumatoid factor positive [Fatal]
  - Liver injury [Fatal]
  - Lower limb fracture [Fatal]
  - Lower respiratory tract infection [Fatal]
  - Lung disorder [Fatal]
  - Malaise [Fatal]
  - Mobility decreased [Fatal]
  - Muscle injury [Fatal]
  - Musculoskeletal stiffness [Fatal]
  - Nasopharyngitis [Fatal]
  - Nausea [Fatal]
  - Night sweats [Fatal]
  - Oedema [Fatal]
  - Osteoarthritis [Fatal]
  - Swelling [Fatal]
  - Pain [Fatal]
  - Pericarditis [Fatal]
  - Peripheral swelling [Fatal]
  - Pruritus [Fatal]
  - Psoriatic arthropathy [Fatal]
  - Pyrexia [Fatal]
  - Rash [Fatal]
  - Rheumatic fever [Fatal]
  - Rheumatoid arthritis [Fatal]
  - Road traffic accident [Fatal]
  - Sciatica [Fatal]
  - Sinusitis [Fatal]
  - Sleep disorder due to general medical condition, insomnia type [Fatal]
  - Wound [Fatal]
  - Stomatitis [Fatal]
  - Swollen joint count increased [Fatal]
  - Synovitis [Fatal]
  - Systemic lupus erythematosus [Fatal]
  - Type 2 diabetes mellitus [Fatal]
  - Urticaria [Fatal]
  - Vomiting [Fatal]
  - Weight increased [Fatal]
  - Injury [Fatal]
  - Abdominal pain [Fatal]
  - Blister [Fatal]
  - Infusion related reaction [Fatal]
  - Prescribed overdose [Fatal]
  - Drug intolerance [Fatal]
  - Off label use [Fatal]
  - Product use issue [Fatal]
  - Therapy non-responder [Fatal]
  - Treatment failure [Fatal]
  - Drug ineffective [Fatal]
